FAERS Safety Report 19026627 (Version 3)
Quarter: 2021Q4

REPORT INFORMATION
  Report Type: Spontaneous
  Country: JP (occurrence: JP)
  Receive Date: 20210318
  Receipt Date: 20211216
  Transmission Date: 20220303
  Serious: Yes (Death, Life-Threatening, Other)
  Sender: FDA-Public Use
  Company Number: JP-ELI_LILLY_AND_COMPANY-JP202103006775

PATIENT
  Age: 59 Year
  Sex: Male

DRUGS (5)
  1. CYRAMZA [Suspect]
     Active Substance: RAMUCIRUMAB
     Indication: Hepatocellular carcinoma
     Dosage: UNK
     Route: 041
     Dates: start: 201907
  2. L-CARNITIN [LEVOCARNITINE HYDROCHLORIDE] [Concomitant]
  3. LIVACT [ISOLEUCINE;LEUCINE;VALINE] [Concomitant]
  4. JANUVIA [Concomitant]
     Active Substance: SITAGLIPTIN PHOSPHATE
  5. NEXIUM [Concomitant]
     Active Substance: ESOMEPRAZOLE MAGNESIUM

REACTIONS (3)
  - Malignant neoplasm progression [Fatal]
  - Oesophageal varices haemorrhage [Recovered/Resolved]
  - Platelet count decreased [Unknown]
